FAERS Safety Report 8085322-8 (Version None)
Quarter: 2012Q1

REPORT INFORMATION
  Report Type: 
  Country: None (occurrence: None)
  Receive Date: 20120128
  Receipt Date: 20110427
  Transmission Date: 20120608
  Serious: No
  Sender: FDA-Public Use
  Company Number: US-ABBOTT-07P-163-0429084-00

PATIENT
  Sex: Female

DRUGS (4)
  1. ATIVAN [Concomitant]
     Indication: PRODUCT USED FOR UNKNOWN INDICATION
  2. HUMIRA [Suspect]
     Indication: CROHN'S DISEASE
     Route: 058
     Dates: start: 20071001, end: 20080505
  3. HUMIRA [Suspect]
     Indication: CROHN'S DISEASE
     Dates: start: 20090301
  4. REMRON [Concomitant]
     Indication: PRODUCT USED FOR UNKNOWN INDICATION

REACTIONS (12)
  - DEVICE MALFUNCTION [None]
  - ABDOMINAL PAIN [None]
  - INCORRECT DOSE ADMINISTERED [None]
  - INJECTION SITE ERYTHEMA [None]
  - INJECTION SITE PRURITUS [None]
  - INJECTION SITE REACTION [None]
  - CROHN'S DISEASE [None]
  - UNEVALUABLE EVENT [None]
  - RECTAL ABSCESS [None]
  - INJECTION SITE WARMTH [None]
  - DIARRHOEA HAEMORRHAGIC [None]
  - INJECTION SITE PAPULE [None]
